FAERS Safety Report 25169180 (Version 2)
Quarter: 2025Q2

REPORT INFORMATION
  Report Type: Report from Study
  Country: US (occurrence: US)
  Receive Date: 20250407
  Receipt Date: 20250528
  Transmission Date: 20250717
  Serious: Yes (Other)
  Sender: ALEXION PHARMACEUTICALS
  Company Number: US-AstraZeneca-CH-00840072A

PATIENT

DRUGS (3)
  1. ACALABRUTINIB [Suspect]
     Active Substance: ACALABRUTINIB
     Indication: Chronic lymphocytic leukaemia
     Dosage: 100 MILLIGRAM, BID
  2. MAGNESIUM [Concomitant]
     Active Substance: MAGNESIUM
     Route: 065
  3. POTASSIUM [Concomitant]
     Active Substance: POTASSIUM
     Route: 065

REACTIONS (11)
  - Pneumonia [Unknown]
  - Nephrolithiasis [Unknown]
  - Colitis [Unknown]
  - Pneumothorax [Unknown]
  - Cough [Unknown]
  - Cardiac disorder [Unknown]
  - Night sweats [Unknown]
  - Dehydration [Unknown]
  - Prostatic disorder [Unknown]
  - Blood pressure abnormal [Unknown]
  - COVID-19 [Unknown]
